FAERS Safety Report 22722360 (Version 3)
Quarter: 2024Q4

REPORT INFORMATION
  Report Type: Spontaneous
  Country: US (occurrence: US)
  Receive Date: 20230719
  Receipt Date: 20241212
  Transmission Date: 20250114
  Serious: No
  Sender: SANOFI AVENTIS
  Company Number: US-SA-SAC20230714001318

PATIENT
  Age: 52 Year
  Sex: Female

DRUGS (38)
  1. DUPIXENT [Suspect]
     Active Substance: DUPILUMAB
     Indication: Asthma
     Dosage: 200 MG, QOW
     Route: 058
  2. AJOVY [Concomitant]
     Active Substance: FREMANEZUMAB-VFRM
  3. AMBIEN [Concomitant]
     Active Substance: ZOLPIDEM TARTRATE
  4. AMLODIPINE [Concomitant]
     Active Substance: AMLODIPINE BESYLATE
  5. BIOTIN [Concomitant]
     Active Substance: BIOTIN
  6. DICYCLOMINE [Concomitant]
     Active Substance: DICYCLOMINE HYDROCHLORIDE
  7. DULOXETINE [Concomitant]
     Active Substance: DULOXETINE
  8. ESTRADIOL [Concomitant]
     Active Substance: ESTRADIOL
  9. FAMOTIDINE [Concomitant]
     Active Substance: FAMOTIDINE
  10. OZEMPIC [Concomitant]
     Active Substance: SEMAGLUTIDE
  11. POTASSIUM [Concomitant]
     Active Substance: POTASSIUM
  12. PREGABALIN [Concomitant]
     Active Substance: PREGABALIN
  13. ROPINIROLE [Concomitant]
     Active Substance: ROPINIROLE
  14. SINGULAIR [Concomitant]
     Active Substance: MONTELUKAST SODIUM
  15. TRAMADOL HCL [Concomitant]
     Active Substance: TRAMADOL HYDROCHLORIDE
  16. TRAZODONE [Concomitant]
     Active Substance: TRAZODONE HYDROCHLORIDE
  17. TRELEGY ELLIPTA [Concomitant]
     Active Substance: FLUTICASONE FUROATE\UMECLIDINIUM BROMIDE\VILANTEROL TRIFENATATE
  18. VITAMIN D2 [Concomitant]
     Active Substance: ERGOCALCIFEROL
  19. VITAMIN B [Concomitant]
     Active Substance: VITAMIN B
  20. ZINC [Concomitant]
     Active Substance: ZINC
  21. ZONISAMIDE [Concomitant]
     Active Substance: ZONISAMIDE
  22. HERBALS\TURMERIC [Concomitant]
     Active Substance: HERBALS\TURMERIC
  23. MAGNESIUM OXIDE [Concomitant]
     Active Substance: MAGNESIUM OXIDE
     Dosage: UNK
  24. LORAZEPAM [Concomitant]
     Active Substance: LORAZEPAM
     Dosage: UNK
  25. AMLODIPINE BESYLATE [Concomitant]
     Active Substance: AMLODIPINE BESYLATE
  26. VITAMIN E [Concomitant]
     Active Substance: .ALPHA.-TOCOPHEROL
  27. IBSRELA [Concomitant]
     Active Substance: TENAPANOR HYDROCHLORIDE
  28. ALBUTEROL SULFATE [Concomitant]
     Active Substance: ALBUTEROL SULFATE
  29. VITAMIN D3 [Concomitant]
     Active Substance: CHOLECALCIFEROL
  30. RABEPRAZOLE [Concomitant]
     Active Substance: RABEPRAZOLE
  31. TIZANIDINE HYDROCHLORIDE [Concomitant]
     Active Substance: TIZANIDINE HYDROCHLORIDE
  32. ROSUVASTATIN [Concomitant]
     Active Substance: ROSUVASTATIN
  33. TRAZODONE HCL [Concomitant]
     Active Substance: TRAZODONE HYDROCHLORIDE
  34. FUROSEMIDE [Concomitant]
     Active Substance: FUROSEMIDE
  35. NAPROXEN [Concomitant]
     Active Substance: NAPROXEN
  36. BOTOX [Concomitant]
     Active Substance: ONABOTULINUMTOXINA
  37. SUCRALFATE [Concomitant]
     Active Substance: SUCRALFATE
  38. PANTOPRAZOLE [Concomitant]
     Active Substance: PANTOPRAZOLE

REACTIONS (4)
  - Migraine [Unknown]
  - Dyspnoea [Not Recovered/Not Resolved]
  - Urinary tract infection [Not Recovered/Not Resolved]
  - Asthma [Not Recovered/Not Resolved]
